FAERS Safety Report 9754455 (Version 1)
Quarter: 2013Q4

REPORT INFORMATION
  Report Type: Spontaneous
  Country: ZA (occurrence: ZA)
  Receive Date: 20131213
  Receipt Date: 20131213
  Transmission Date: 20140711
  Serious: Yes (Other)
  Sender: FDA-Public Use
  Company Number: ZA-ABBVIE-13P-143-1179215-00

PATIENT
  Sex: Female

DRUGS (1)
  1. EPILIZINE [Suspect]
     Indication: PRODUCT USED FOR UNKNOWN INDICATION
     Route: 048

REACTIONS (2)
  - Petit mal epilepsy [Not Recovered/Not Resolved]
  - Medication residue present [Unknown]
